FAERS Safety Report 24526449 (Version 2)
Quarter: 2025Q1

REPORT INFORMATION
  Report Type: Report from Study
  Country: US (occurrence: US)
  Receive Date: 20241021
  Receipt Date: 20250325
  Transmission Date: 20250409
  Serious: Yes (Hospitalization, Other)
  Sender: TAKEDA
  Company Number: US-TAKEDA-2023TUS095612

PATIENT
  Sex: Female
  Weight: 89 kg

DRUGS (28)
  1. HUMAN IMMUNOGLOBULIN G [Suspect]
     Active Substance: HUMAN IMMUNOGLOBULIN G
     Indication: Selective IgG subclass deficiency
     Dosage: 10 GRAM, 1/WEEK
     Dates: start: 20230928
  2. ACETAMINOPHEN [Concomitant]
     Active Substance: ACETAMINOPHEN
  3. EPINEPHRINE [Concomitant]
     Active Substance: EPINEPHRINE
  4. ATORVASTATIN CALCIUM [Concomitant]
     Active Substance: ATORVASTATIN CALCIUM
  5. DIPHENHYDRAMINE HYDROCHLORIDE [Concomitant]
     Active Substance: DIPHENHYDRAMINE HYDROCHLORIDE
  6. VITAMIN D [Concomitant]
     Active Substance: VITAMIN D NOS
  7. METOCLOPRAMIDE HYDROCHLORIDE [Concomitant]
     Active Substance: METOCLOPRAMIDE HYDROCHLORIDE
  8. Dulcolax [Concomitant]
  9. FOLIC ACID [Concomitant]
     Active Substance: FOLIC ACID
  10. AZELASTINE HYDROCHLORIDE [Concomitant]
     Active Substance: AZELASTINE HYDROCHLORIDE
  11. BREZTRI [Concomitant]
     Active Substance: BUDESONIDE\FORMOTEROL\GLYCOPYRROLATE
  12. LINZESS [Concomitant]
     Active Substance: LINACLOTIDE
  13. MAGNESIUM [Concomitant]
     Active Substance: MAGNESIUM
  14. PANTOPRAZOLE SODIUM [Concomitant]
     Active Substance: PANTOPRAZOLE SODIUM
  15. ELIQUIS [Concomitant]
     Active Substance: APIXABAN
  16. GABAPENTIN [Concomitant]
     Active Substance: GABAPENTIN
  17. LANTUS SOLOSTAR [Concomitant]
     Active Substance: INSULIN GLARGINE
  18. FLUTICASONE PROPIONATE [Concomitant]
     Active Substance: FLUTICASONE PROPIONATE
  19. NURTEC ODT [Concomitant]
     Active Substance: RIMEGEPANT SULFATE
  20. VENTOLIN HFA [Concomitant]
     Active Substance: ALBUTEROL SULFATE
  21. CLONAZEPAM [Concomitant]
     Active Substance: CLONAZEPAM
  22. HUMALOG [Concomitant]
     Active Substance: INSULIN LISPRO
  23. Lmx [Concomitant]
  24. DICYCLOMINE HYDROCHLORIDE [Concomitant]
     Active Substance: DICYCLOMINE HYDROCHLORIDE
  25. BENZONATATE [Concomitant]
     Active Substance: BENZONATATE
  26. LORATADINE [Concomitant]
     Active Substance: LORATADINE
  27. ONDANSETRON HYDROCHLORIDE [Concomitant]
     Active Substance: ONDANSETRON HYDROCHLORIDE
  28. LOSARTAN POTASSIUM [Concomitant]
     Active Substance: LOSARTAN POTASSIUM

REACTIONS (11)
  - Pneumonia [Unknown]
  - Sleep disorder [Unknown]
  - Sinusitis [Unknown]
  - Rhinorrhoea [Unknown]
  - Cough [Unknown]
  - Malaise [Unknown]
  - Dyspnoea [Unknown]
  - Pruritus [Recovered/Resolved]
  - Nausea [Recovered/Resolved]
  - Headache [Unknown]
  - Dizziness [Unknown]
